FAERS Safety Report 11046008 (Version 2)
Quarter: 2015Q2

REPORT INFORMATION
  Report Type: Spontaneous
  Country: US (occurrence: US)
  Receive Date: 20150418
  Receipt Date: 20150526
  Transmission Date: 20150821
  Serious: No
  Sender: FDA-Public Use
  Company Number: US-JNJFOC-20150308989

PATIENT
  Age: 4 Decade
  Sex: Male

DRUGS (2)
  1. HALOPERIDOL. [Suspect]
     Active Substance: HALOPERIDOL
     Indication: TOURETTE^S DISORDER
     Dosage: 5-7 MG
     Route: 065
  2. PIMOZIDE [Suspect]
     Active Substance: PIMOZIDE
     Indication: TOURETTE^S DISORDER
     Dosage: 6-7 MG
     Route: 065

REACTIONS (5)
  - Product use issue [Unknown]
  - Dysarthria [Unknown]
  - Irritability [Unknown]
  - Weight increased [Unknown]
  - Akathisia [Unknown]
